FAERS Safety Report 10385622 (Version 3)
Quarter: 2014Q4

REPORT INFORMATION
  Report Type: Spontaneous
  Country: DE (occurrence: None)
  Receive Date: 20140812
  Receipt Date: 20141217
  Transmission Date: 20150528
  Serious: Yes (Other)
  Sender: FDA-Public Use
  Company Number: 2014-1806-SPO

PATIENT
  Age: 68 Year
  Sex: Female

DRUGS (6)
  1. MIRTAZAPINE (MIRTAZAPINE) [Concomitant]
     Active Substance: MIRTAZAPINE
  2. GYNOKADIN (ESTRADIOL) (UNKNOWN) [Suspect]
     Active Substance: ESTRADIOL
     Dosage: 1 PUFF, TWICE WEEKLY, 2 IN 1 WK,TRANSDERMAL
     Route: 062
     Dates: start: 201305, end: 201406
  3. STALEVO [Concomitant]
     Active Substance: CARBIDOPA\ENTACAPONE\LEVODOPA
  4. SIFROL (PRAMIPEXOLE DIHYDROCHLORIDE) [Concomitant]
  5. FOSAVANCE (COLECALCIFEROL, ALENDRONATE SODIUM) [Concomitant]
  6. GYNOKADIN (ESTRADIOL) (UNKNOWN) [Suspect]
     Active Substance: ESTRADIOL
     Indication: HOT FLUSH
     Dosage: 1 PUFF, TWICE WEEKLY, 2 IN 1 WK,TRANSDERMAL
     Route: 062
     Dates: start: 201305, end: 201406

REACTIONS (2)
  - Venous thrombosis limb [None]
  - Thrombophlebitis [None]

NARRATIVE: CASE EVENT DATE: 20140610
